FAERS Safety Report 9154826 (Version 3)
Quarter: 2013Q1

REPORT INFORMATION
  Report Type: Spontaneous
  Country: AU (occurrence: None)
  Receive Date: 20130208
  Receipt Date: 20130318
  Transmission Date: 20140127
  Serious: Yes (Other)
  Sender: FDA-Public Use
  Company Number: ACO_34095_2013

PATIENT
  Age: 60 Year
  Sex: Female

DRUGS (15)
  1. FAMPRIDINE [Suspect]
     Indication: MULTIPLE SCLEROSIS
     Route: 048
     Dates: start: 20120412, end: 20130121
  2. TYSABRI (NATALIZUMAB) [Concomitant]
  3. DITROPAN (OXYBUTYNIN HYDROCHLORIDE) [Concomitant]
  4. BACLOFEN (BACLOFEN) (BACLOFEN) [Concomitant]
  5. SYMMETREL (AMANTADINE HYDROCHLORIDE) [Concomitant]
  6. COVERSYL (PERINDOPRIL ERBUMINE) [Concomitant]
  7. FOSAMAX (ALENDRONAE SODIUM) [Concomitant]
  8. ASIPRIN (ACETYLSALICYLIC ACID) [Concomitant]
  9. HIPREX (METHENAMINE HIPPURATE) [Concomitant]
  10. CALTRATE [Concomitant]
  11. EZETROL (EZETIMIBE) [Concomitant]
  12. OSTELIN (ERGOCALCIFEROL) [Concomitant]
  13. CELECOXIB (CELECOXIB) [Concomitant]
  14. NEXIUM (ESOMEPRAZOLE MAGNESIUM) [Concomitant]
  15. NITROFURANTOIN [Concomitant]

REACTIONS (3)
  - Grand mal convulsion [None]
  - Blood pressure systolic increased [None]
  - Monocyte count increased [None]
